FAERS Safety Report 22541715 (Version 1)
Quarter: 2023Q2

REPORT INFORMATION
  Report Type: Spontaneous
  Country: US (occurrence: US)
  Receive Date: 20230609
  Receipt Date: 20230609
  Transmission Date: 20230722
  Serious: Yes (Other)
  Sender: FDA-Public Use
  Company Number: US-BAYER-2023A079094

PATIENT
  Age: 36 Year
  Sex: Male

DRUGS (9)
  1. ASPIRIN [Suspect]
     Active Substance: ASPIRIN
  2. GEMFIBROZIL [Concomitant]
     Active Substance: GEMFIBROZIL
  3. ICOSAPENT ETHYL [Concomitant]
     Active Substance: ICOSAPENT ETHYL
  4. LISINOPRIL [Concomitant]
     Active Substance: LISINOPRIL
  5. INSULIN NOS [Concomitant]
     Active Substance: INSULIN NOS
  6. SITAGLIPTIN [Concomitant]
     Active Substance: SITAGLIPTIN
  7. METFORMIN [Concomitant]
     Active Substance: METFORMIN HYDROCHLORIDE
  8. METOPROLOL [Concomitant]
     Active Substance: METOPROLOL
  9. GABAPENTIN [Concomitant]
     Active Substance: GABAPENTIN

REACTIONS (1)
  - Vitreous haemorrhage [None]
